FAERS Safety Report 9852537 (Version 1)
Quarter: 2014Q1

REPORT INFORMATION
  Report Type: Spontaneous
  Country: US (occurrence: US)
  Receive Date: 20140129
  Receipt Date: 20140129
  Transmission Date: 20141002
  Serious: No
  Sender: FDA-Public Use
  Company Number: US-PFIZER INC-2014024983

PATIENT
  Sex: Male

DRUGS (1)
  1. CELECOXIB [Suspect]
     Dosage: UNK

REACTIONS (5)
  - Hypersensitivity [Unknown]
  - Lip swelling [Unknown]
  - Swelling face [Unknown]
  - Rash [Unknown]
  - Urticaria [Unknown]
